FAERS Safety Report 21985774 (Version 3)
Quarter: 2023Q2

REPORT INFORMATION
  Report Type: Report from Study
  Country: JP (occurrence: JP)
  Receive Date: 20230213
  Receipt Date: 20230411
  Transmission Date: 20230722
  Serious: Yes (Life-Threatening, Hospitalization)
  Sender: FDA-Public Use
  Company Number: JP-OTSUKA-2022_020796

PATIENT
  Age: 62 Year
  Sex: Female
  Weight: 62.2 kg

DRUGS (25)
  1. ARIPIPRAZOLE [Suspect]
     Active Substance: ARIPIPRAZOLE
     Indication: Bipolar I disorder
     Dosage: 300 MG/SHOT
     Route: 030
     Dates: start: 20230113
  2. ARIPIPRAZOLE [Suspect]
     Active Substance: ARIPIPRAZOLE
     Dosage: 400 MG/SHOT
     Route: 030
     Dates: start: 20220131, end: 20220131
  3. ARIPIPRAZOLE [Suspect]
     Active Substance: ARIPIPRAZOLE
     Dosage: 400 MG/SHOT
     Route: 030
     Dates: start: 20220228, end: 20220228
  4. ARIPIPRAZOLE [Suspect]
     Active Substance: ARIPIPRAZOLE
     Dosage: 400 MG/SHOT
     Route: 030
     Dates: start: 20220328, end: 20220328
  5. ARIPIPRAZOLE [Suspect]
     Active Substance: ARIPIPRAZOLE
     Dosage: 400 MG/SHOT
     Route: 030
     Dates: start: 20220425, end: 20220425
  6. ARIPIPRAZOLE [Suspect]
     Active Substance: ARIPIPRAZOLE
     Dosage: 400 MG/SHOT
     Route: 030
     Dates: start: 20220530, end: 20220530
  7. ARIPIPRAZOLE [Suspect]
     Active Substance: ARIPIPRAZOLE
     Dosage: 400 MG/SHOT
     Route: 030
     Dates: start: 20220627, end: 20220627
  8. ARIPIPRAZOLE [Suspect]
     Active Substance: ARIPIPRAZOLE
     Dosage: 400 MG/SHOT
     Route: 030
     Dates: start: 20220725, end: 20220725
  9. ARIPIPRAZOLE [Suspect]
     Active Substance: ARIPIPRAZOLE
     Dosage: 400 MG/SHOT
     Route: 030
     Dates: start: 20220822, end: 20220822
  10. ARIPIPRAZOLE [Suspect]
     Active Substance: ARIPIPRAZOLE
     Dosage: 400 MG/SHOT
     Route: 030
     Dates: start: 20220928, end: 20220928
  11. ARIPIPRAZOLE [Suspect]
     Active Substance: ARIPIPRAZOLE
     Dosage: 400 MG/SHOT
     Route: 030
     Dates: start: 20221028, end: 20221028
  12. ARIPIPRAZOLE [Suspect]
     Active Substance: ARIPIPRAZOLE
     Dosage: 400 MG/SHOT
     Route: 030
     Dates: start: 20221202, end: 20221202
  13. ABILIFY [Suspect]
     Active Substance: ARIPIPRAZOLE
     Indication: Bipolar I disorder
     Dosage: 12MG/DAY
     Route: 048
     Dates: start: 20230131, end: 20230306
  14. ABILIFY [Suspect]
     Active Substance: ARIPIPRAZOLE
     Dosage: 24MG/DAY
     Route: 048
     Dates: end: 20220204
  15. ABILIFY [Suspect]
     Active Substance: ARIPIPRAZOLE
     Dosage: 12MG/DAY
     Route: 048
     Dates: start: 20220205, end: 20220413
  16. ABILIFY [Concomitant]
     Active Substance: ARIPIPRAZOLE
     Indication: Bipolar I disorder
     Dosage: 6MG/DAY
     Route: 048
     Dates: start: 20220414, end: 20220425
  17. ABILIFY [Concomitant]
     Active Substance: ARIPIPRAZOLE
     Dosage: 3MG/DAY
     Route: 048
     Dates: start: 20220426, end: 20220530
  18. VALPROATE SODIUM [Concomitant]
     Active Substance: VALPROATE SODIUM
     Indication: Bipolar I disorder
     Dosage: 400MG/DAY
     Route: 048
  19. VALPROATE SODIUM [Concomitant]
     Active Substance: VALPROATE SODIUM
     Dosage: 400MG/DAY
     Route: 048
     Dates: start: 20230131, end: 20230307
  20. DAYVIGO [Concomitant]
     Active Substance: LEMBOREXANT
     Indication: Product used for unknown indication
     Dosage: 5 MG/DAY
     Route: 048
     Dates: end: 20220725
  21. DAYVIGO [Concomitant]
     Active Substance: LEMBOREXANT
     Dosage: 5 MG/DAY
     Route: 048
     Dates: start: 20230131, end: 20230203
  22. LIPITOR [Concomitant]
     Active Substance: ATORVASTATIN CALCIUM
     Indication: Hypercholesterolaemia
     Dosage: 5 MG/DAY
     Route: 048
  23. LATUDA [Concomitant]
     Active Substance: LURASIDONE HYDROCHLORIDE
     Indication: Bipolar I disorder
     Dosage: 40 MG/DAY
     Route: 048
     Dates: end: 20220627
  24. OLANZAPINE [Concomitant]
     Active Substance: OLANZAPINE
     Indication: Bipolar I disorder
     Dosage: 5MG/DAY
     Route: 048
     Dates: start: 20220615, end: 20220619
  25. LUNESTA [Concomitant]
     Active Substance: ESZOPICLONE
     Indication: Product used for unknown indication
     Dosage: 2MG/DAY
     Route: 048
     Dates: start: 20230206, end: 20230306

REACTIONS (4)
  - Mania [Recovered/Resolved]
  - COVID-19 [Recovered/Resolved]
  - Hypomania [Recovered/Resolved]
  - Depression [Recovered/Resolved with Sequelae]

NARRATIVE: CASE EVENT DATE: 20220313
